FAERS Safety Report 5366131-7 (Version None)
Quarter: 2007Q2

REPORT INFORMATION
  Report Type: 
  Country: None (occurrence: None)
  Receive Date: 20070530
  Receipt Date: 20050808
  Transmission Date: 20071010
  Serious: No
  Sender: FDA-Public Use
  Company Number: 2005PV000891

PATIENT
  Age: 28 Year
  Sex: Female

DRUGS (1)
  1. BYETTA [Suspect]
     Indication: INJECTION
     Dosage: SC
     Route: 058
     Dates: start: 20050808, end: 20050808

REACTIONS (3)
  - ACCIDENTAL EXPOSURE [None]
  - HEADACHE [None]
  - NAUSEA [None]
